FAERS Safety Report 24692715 (Version 1)
Quarter: 2024Q4

REPORT INFORMATION
  Report Type: Spontaneous
  Country: US (occurrence: US)
  Receive Date: 20241203
  Receipt Date: 20241203
  Transmission Date: 20250114
  Serious: No
  Sender: PFIZER
  Company Number: US-PFIZER INC-202400314695

PATIENT
  Age: 90 Year
  Sex: Female

DRUGS (1)
  1. IBRANCE [Suspect]
     Active Substance: PALBOCICLIB
     Indication: Breast cancer female
     Dosage: 125 MG, CYCLIC, DAILY ON DAYS 1 THROUGH 21 OF A 28 DAY CYCLE
     Route: 048
     Dates: start: 202408

REACTIONS (2)
  - Wound [Not Recovered/Not Resolved]
  - Laboratory test abnormal [Not Recovered/Not Resolved]
